FAERS Safety Report 9053505 (Version 1)
Quarter: 2013Q1

REPORT INFORMATION
  Report Type: Report from Study
  Country: JP (occurrence: JP)
  Receive Date: 20130208
  Receipt Date: 20130208
  Transmission Date: 20140127
  Serious: Yes (Hospitalization)
  Sender: FDA-Public Use
  Company Number: PHHO2012JP018114

PATIENT
  Age: 62 None
  Sex: Female
  Weight: 65 kg

DRUGS (5)
  1. BLINDED LCZ696 [Suspect]
     Indication: ESSENTIAL HYPERTENSION
     Dosage: CODE NOT BROKEN
     Route: 048
     Dates: start: 20120907, end: 20121120
  2. BLINDED NO TREATMENT RECEIVED [Suspect]
     Indication: ESSENTIAL HYPERTENSION
     Dosage: CODE NOT BROKEN
     Route: 048
     Dates: start: 20120907, end: 20121120
  3. BLINDED OLMESARTAN [Suspect]
     Indication: ESSENTIAL HYPERTENSION
     Dosage: CODE NOT BROKEN
     Route: 048
     Dates: start: 20120907, end: 20121120
  4. EXFORGE [Concomitant]
     Indication: HYPERTENSION
     Dosage: 1 DF, UNK
     Route: 048
     Dates: start: 20121121
  5. MEILAX [Concomitant]
     Indication: ANXIETY
     Dosage: 0.5 MG, UNK
     Route: 048
     Dates: start: 20070314

REACTIONS (1)
  - Intervertebral disc protrusion [Recovering/Resolving]
